FAERS Safety Report 14899447 (Version 1)
Quarter: 2018Q2

REPORT INFORMATION
  Report Type: Other
  Country: US (occurrence: US)
  Receive Date: 20180516
  Receipt Date: 20180516
  Transmission Date: 20180711
  Serious: No
  Sender: FDA-Public Use
  Company Number: US-LUPIN PHARMACEUTICALS INC.-2018-02927

PATIENT
  Age: 22 Year
  Sex: Male
  Weight: 160.9 kg

DRUGS (3)
  1. DESVENLAFAXINE EXTENDED RELEASE TABLET 100MG [Suspect]
     Active Substance: DESVENLAFAXINE
     Indication: MAJOR DEPRESSION
     Dosage: 100 MG, QD
     Route: 048
     Dates: start: 201708
  2. DESVENLAFAXINE EXTENDED RELEASE TABLET 100MG [Suspect]
     Active Substance: DESVENLAFAXINE
     Dosage: 100 MG, QD
     Route: 048
  3. DESVENLAFAXINE EXTENDED RELEASE TABLET 100MG [Suspect]
     Active Substance: DESVENLAFAXINE
     Dosage: 100 MG, QD
     Route: 048
     Dates: start: 201802, end: 201802

REACTIONS (2)
  - Anxiety [Recovered/Resolved]
  - Fatigue [Recovered/Resolved]

NARRATIVE: CASE EVENT DATE: 201802
